FAERS Safety Report 12521336 (Version 2)
Quarter: 2016Q3

REPORT INFORMATION
  Report Type: Spontaneous
  Country: CN (occurrence: CN)
  Receive Date: 20160701
  Receipt Date: 20160706
  Transmission Date: 20161109
  Serious: Yes (Life-Threatening, Hospitalization, Other)
  Sender: FDA-Public Use
  Company Number: CN-009507513-1606CHN014133

PATIENT
  Age: 62 Year
  Sex: Male

DRUGS (1)
  1. EMEND [Suspect]
     Active Substance: APREPITANT
     Indication: VOMITING
     Dosage: 125 MG, QD
     Route: 048
     Dates: start: 20160621, end: 20160624

REACTIONS (2)
  - Coma [Recovered/Resolved]
  - Hyponatraemia [Recovered/Resolved]

NARRATIVE: CASE EVENT DATE: 20160626
